FAERS Safety Report 6512100-0 (Version None)
Quarter: 2009Q4

REPORT INFORMATION
  Report Type: 
  Country: None (occurrence: None)
  Receive Date: 20091222
  Receipt Date: 20090602
  Transmission Date: 20100525
  Serious: No
  Sender: FDA-Public Use
  Company Number: US-ASTRAZENECA-2009UW14056

PATIENT
  Age: 818 Month
  Sex: Female

DRUGS (6)
  1. CRESTOR [Suspect]
     Indication: BLOOD CHOLESTEROL INCREASED
     Route: 048
  2. ATENOLOL [Concomitant]
  3. LISINOPRIL [Concomitant]
  4. POTASSIUM [Concomitant]
  5. WELCHOL [Concomitant]
  6. LASIX [Concomitant]

REACTIONS (2)
  - DIARRHOEA [None]
  - MYALGIA [None]
